FAERS Safety Report 5492034-3 (Version None)
Quarter: 2007Q4

REPORT INFORMATION
  Report Type: 
  Country: None (occurrence: None)
  Receive Date: 20071018
  Receipt Date: 20071018
  Transmission Date: 20080405
  Serious: Yes (Hospitalization)
  Sender: FDA-Public Use
  Company Number: None

PATIENT
  Sex: Male
  Weight: 76.2043 kg

DRUGS (9)
  1. LENALIDOMIDE 25MG CELGENE [Suspect]
     Indication: PROSTATE CANCER
     Dosage: 25MG  QD PO
     Route: 048
     Dates: start: 20070913, end: 20071014
  2. DOCETAXEL [Suspect]
     Indication: PROSTATE CANCER
     Dosage: 75MG/M2 Q THREE WEEKS IV DRIP
     Route: 041
     Dates: start: 20070913, end: 20071004
  3. PREDNISONE [Concomitant]
  4. DEXAMETHASONE 0.5MG TAB [Concomitant]
  5. REVLIMID [Concomitant]
  6. PRED-FORTE EYE DROPS [Concomitant]
  7. ZOMETA [Concomitant]
  8. TETRACYCLINE [Concomitant]
  9. PERCOCET [Concomitant]

REACTIONS (10)
  - ARTHRALGIA [None]
  - DEEP VEIN THROMBOSIS [None]
  - DIZZINESS [None]
  - HEART RATE INCREASED [None]
  - METASTASES TO BONE [None]
  - MOBILITY DECREASED [None]
  - OEDEMA PERIPHERAL [None]
  - ORAL INTAKE REDUCED [None]
  - WEIGHT BEARING DIFFICULTY [None]
  - WEIGHT DECREASED [None]
